FAERS Safety Report 6603508-3 (Version None)
Quarter: 2010Q1

REPORT INFORMATION
  Report Type: 
  Country: None (occurrence: None)
  Receive Date: 20100226
  Receipt Date: 20090908
  Transmission Date: 20100710
  Serious: No
  Sender: FDA-Public Use
  Company Number: A0801644A

PATIENT
  Age: 44 Year
  Sex: Female

DRUGS (6)
  1. VALTREX [Suspect]
     Dosage: 500MG THREE TIMES PER DAY
     Route: 048
     Dates: start: 20070101
  2. ZOVIRAX [Suspect]
  3. LYSINE [Concomitant]
  4. ZINC [Concomitant]
  5. OTHER MEDICATIONS [Concomitant]
  6. SUPPLEMENT [Concomitant]

REACTIONS (4)
  - DRUG EFFECT DECREASED [None]
  - DRUG INEFFECTIVE [None]
  - HERPES VIRUS INFECTION [None]
  - PRODUCT QUALITY ISSUE [None]
